FAERS Safety Report 6196544-5 (Version None)
Quarter: 2009Q2

REPORT INFORMATION
  Report Type: 
  Country: None (occurrence: None)
  Receive Date: 20090520
  Receipt Date: 20090512
  Transmission Date: 20091009
  Serious: Yes (Other)
  Sender: FDA-Public Use
  Company Number: US-BAYER-200920711NA

PATIENT
  Age: 54 Year
  Sex: Female
  Weight: 68 kg

DRUGS (7)
  1. SORAFENIB [Suspect]
     Indication: BREAST CANCER METASTATIC
     Dosage: TOTAL DAILY DOSE: 400 MG  UNIT DOSE: 200 MG
     Route: 048
     Dates: start: 20090317, end: 20090421
  2. SORAFENIB [Suspect]
     Dosage: TOTAL DAILY DOSE: 200 MG  UNIT DOSE: 200 MG
     Route: 048
     Dates: start: 20090422, end: 20090511
  3. VINORELBINE [Suspect]
     Indication: BREAST CANCER METASTATIC
     Dosage: WEEKLY X3 WEEKS ON A 28 DAY CYCLE
     Route: 042
     Dates: start: 20090317, end: 20090428
  4. COUMADIN [Concomitant]
     Indication: THROMBOSIS
     Dosage: 2MG ALTERNATING 3MG
     Dates: start: 20090228, end: 20090511
  5. LOSARTAN POTASSIUM [Concomitant]
     Indication: HYPERTENSION
     Dates: start: 20090422
  6. ATENOLOL [Concomitant]
     Indication: HYPERTENSION
     Dates: start: 20080101
  7. CARTIA XT [Concomitant]
     Indication: HYPERTENSION
     Dates: start: 20080101

REACTIONS (6)
  - ACTIVATED PARTIAL THROMBOPLASTIN TIME PROLONGED [None]
  - BLOOD PRESSURE INCREASED [None]
  - CONTUSION [None]
  - OEDEMA PERIPHERAL [None]
  - PAIN IN EXTREMITY [None]
  - PROTHROMBIN TIME PROLONGED [None]
